FAERS Safety Report 7649156-8 (Version None)
Quarter: 2011Q3

REPORT INFORMATION
  Report Type: 
  Country: None (occurrence: None)
  Receive Date: 20110727
  Receipt Date: 20110721
  Transmission Date: 20111222
  Serious: Yes (Death)
  Sender: FDA-Public Use
  Company Number: 2011SP028216

PATIENT
  Age: 46 Year
  Sex: Male
  Weight: 124.7392 kg

DRUGS (3)
  1. SAPHRIS [Suspect]
     Indication: SCHIZOPHRENIA
     Dosage: 10 MG; HS; PO
     Route: 048
     Dates: start: 20110202
  2. LISINOPRIL [Concomitant]
  3. PRAVASTTATIN SODIUM [Concomitant]

REACTIONS (3)
  - LOW DENSITY LIPOPROTEIN INCREASED [None]
  - BLOOD GLUCOSE INCREASED [None]
  - MYOCARDIAL INFARCTION [None]
